FAERS Safety Report 7388249-X (Version None)
Quarter: 2011Q2

REPORT INFORMATION
  Report Type: 
  Country: None (occurrence: None)
  Receive Date: 20110401
  Receipt Date: 20110321
  Transmission Date: 20111010
  Serious: Yes (Other)
  Sender: FDA-Public Use
  Company Number: GB-BAYER-2011-026599

PATIENT
  Age: 21 Year
  Sex: Female

DRUGS (2)
  1. CLONIDINE [Concomitant]
     Indication: TOURETTE'S DISORDER
  2. MIRENA [Suspect]
     Dosage: 20 ?G, CONT
     Route: 015
     Dates: start: 20110224

REACTIONS (2)
  - DYSKINESIA [None]
  - SYNCOPE [None]
